APPROVED DRUG PRODUCT: NICARDIPINE HYDROCHLORIDE
Active Ingredient: NICARDIPINE HYDROCHLORIDE
Strength: 30MG
Dosage Form/Route: CAPSULE;ORAL
Application: A074928 | Product #002 | TE Code: AB
Applicant: EPIC PHARMA LLC
Approved: Mar 19, 1998 | RLD: No | RS: Yes | Type: RX